FAERS Safety Report 7041920-1 (Version None)
Quarter: 2010Q4

REPORT INFORMATION
  Report Type: 
  Country: None (occurrence: None)
  Receive Date: 20101013
  Receipt Date: 20100501
  Transmission Date: 20110411
  Serious: No
  Sender: FDA-Public Use
  Company Number: US-ASTRAZENECA-2010SE10922

PATIENT
  Age: 38 Year
  Sex: Female

DRUGS (3)
  1. SYMBICORT [Suspect]
     Indication: ASTHMA
     Dosage: 160/4.5 UG 1 PUFF BID
     Route: 055
     Dates: start: 20090401
  2. PREDNISONE [Concomitant]
     Indication: ASTHMA
     Dosage: 60-100 MG DAILY
     Route: 048
  3. PROVENTIL [Concomitant]
     Indication: ASTHMA

REACTIONS (3)
  - CHEST DISCOMFORT [None]
  - COUGH [None]
  - WHEEZING [None]
